FAERS Safety Report 8102756-3 (Version None)
Quarter: 2012Q1

REPORT INFORMATION
  Report Type: 
  Country: None (occurrence: None)
  Receive Date: 20120126
  Receipt Date: 20120118
  Transmission Date: 20120608
  Serious: Yes (Hospitalization)
  Sender: FDA-Public Use
  Company Number: 2012SP003404

PATIENT
  Age: 55 Year
  Sex: Female

DRUGS (8)
  1. REBETOL [Suspect]
     Indication: HEPATITIS C
     Dates: start: 20110916, end: 20120114
  2. PANTOPRAZOLE [Concomitant]
  3. SURMONTIL [Concomitant]
  4. VICTRELIS [Suspect]
     Indication: HEPATITIS C
     Dosage: 800 MG; TID; PO
     Route: 048
     Dates: start: 20111014, end: 20120114
  5. CATAFLAM [Concomitant]
  6. NEUPOGEN [Concomitant]
  7. PEG-INTRON [Suspect]
     Indication: HEPATITIS C
     Dates: start: 20110916, end: 20120114
  8. FLUONATRIL [Concomitant]

REACTIONS (2)
  - ELECTROCARDIOGRAM QT PROLONGED [None]
  - HAEMOLYSIS [None]
